FAERS Safety Report 8134338-1 (Version None)
Quarter: 2012Q1

REPORT INFORMATION
  Report Type: 
  Country: None (occurrence: None)
  Receive Date: 20120209
  Receipt Date: 20120126
  Transmission Date: 20120608
  Serious: Yes (Other)
  Sender: FDA-Public Use
  Company Number: SAF/SAF/12/0022826

PATIENT
  Sex: Male

DRUGS (4)
  1. OMEPRAZOLE [Suspect]
     Indication: DUODENAL ULCER
     Dosage: 20 MG, 1 IN 1 D, ORAL
     Route: 048
     Dates: start: 20110301, end: 20111101
  2. LORIEN [Concomitant]
  3. PRATASIOL [Concomitant]
  4. VITAMIN B COMPLEX CAP [Concomitant]

REACTIONS (1)
  - INTESTINAL CYST [None]
